FAERS Safety Report 12998814 (Version 1)
Quarter: 2016Q4

REPORT INFORMATION
  Report Type: Spontaneous
  Country: GB (occurrence: GB)
  Receive Date: 20161205
  Receipt Date: 20161205
  Transmission Date: 20170207
  Serious: Yes (Other)
  Sender: FDA-Public Use
  Company Number: GB-GALDERMA-GB16008155

PATIENT
  Age: 60 Year
  Sex: Male
  Weight: 87 kg

DRUGS (8)
  1. CO-AMOXICLAV [Concomitant]
     Active Substance: AMOXICILLIN\CLAVULANIC ACID
     Dates: start: 20161118
  2. METRONIDAZOLE. [Suspect]
     Active Substance: METRONIDAZOLE
     Indication: PRODUCT USED FOR UNKNOWN INDICATION
     Dates: start: 20160229
  3. ALLOPURINOL. [Concomitant]
     Active Substance: ALLOPURINOL
     Dates: start: 20160324
  4. ATORVASTATIN [Concomitant]
     Active Substance: ATORVASTATIN
     Dates: start: 20160324
  5. CIALIS [Concomitant]
     Active Substance: TADALAFIL
     Dates: start: 20161107
  6. FULTIUM-D3 [Concomitant]
     Dates: start: 20160324
  7. FYBOGEL [Concomitant]
     Active Substance: PLANTAGO OVATA SEED
     Dates: start: 20161118
  8. LORATADINE. [Concomitant]
     Active Substance: LORATADINE
     Dates: start: 20160324

REACTIONS (1)
  - Rash [Unknown]

NARRATIVE: CASE EVENT DATE: 20161118
